FAERS Safety Report 8375120 (Version 2)
Quarter: 2013Q2

REPORT INFORMATION
  Report Type: Spontaneous
  Country: US (occurrence: None)
  Receive Date: 20111221
  Receipt Date: 20121227
  Transmission Date: 20140414
  Serious: Yes (Other)
  Sender: FDA-Public Use
  Company Number: PHEH2011US05741

PATIENT
  Age: 2 Year
  Sex: Female

DRUGS (1)
  1. EXJADE [Suspect]
     Dosage: 250 MG, QD, ORAL
     Route: 048

REACTIONS (6)
  - HEPATIC ENZYME INCREASED [None]
  - Splenomegaly [None]
  - Gallbladder enlargement [None]
  - Renal disorder [None]
  - Cytomegalovirus test positive [None]
  - Transaminases increased [None]
